FAERS Safety Report 15578162 (Version 1)
Quarter: 2018Q4

REPORT INFORMATION
  Report Type: Spontaneous
  Country: US (occurrence: US)
  Receive Date: 20181101
  Receipt Date: 20181101
  Transmission Date: 20190205
  Serious: Yes (Disabling)
  Sender: FDA-Public Use
  Company Number: None

PATIENT
  Age: 92 Year

DRUGS (4)
  1. ZIOPTAN [Suspect]
     Active Substance: TAFLUPROST
     Indication: GLAUCOMA
     Dosage: ?          QUANTITY:1 DROP(S);?
     Route: 047
  2. TIMOPTIC [Concomitant]
     Active Substance: TIMOLOL MALEATE
  3. MVI [Concomitant]
     Active Substance: VITAMINS
  4. LUTEN EYE VITAMINS [Concomitant]

REACTIONS (4)
  - Headache [None]
  - Photophobia [None]
  - Impaired driving ability [None]
  - Delayed dark adaptation [None]

NARRATIVE: CASE EVENT DATE: 20181028
